FAERS Safety Report 25318956 (Version 1)
Quarter: 2025Q2

REPORT INFORMATION
  Report Type: Spontaneous
  Country: FR (occurrence: FR)
  Receive Date: 20250515
  Receipt Date: 20250515
  Transmission Date: 20250717
  Serious: Yes (Other)
  Sender: ETHYPHARM
  Company Number: FR-EMA-DD-20191011-prabhakar_d-174329

PATIENT
  Age: 20 Year
  Sex: Male

DRUGS (6)
  1. BUPRENORPHINE [Suspect]
     Active Substance: BUPRENORPHINE
     Route: 065
  2. MORPHINE [Suspect]
     Active Substance: MORPHINE
     Route: 042
  3. MORPHINE [Suspect]
     Active Substance: MORPHINE
     Route: 045
  4. VERAPAMIL [Suspect]
     Active Substance: VERAPAMIL HYDROCHLORIDE
     Indication: Cluster headache
     Route: 065
  5. BROMAZEPAM [Suspect]
     Active Substance: BROMAZEPAM
     Route: 065
  6. CLONAZEPAM [Suspect]
     Active Substance: CLONAZEPAM
     Route: 065

REACTIONS (4)
  - Drug ineffective [Unknown]
  - Drug abuse [Unknown]
  - Cluster headache [Unknown]
  - Intentional product use issue [Unknown]
